FAERS Safety Report 24454493 (Version 2)
Quarter: 2024Q4

REPORT INFORMATION
  Report Type: Report from Study
  Country: ES (occurrence: ES)
  Receive Date: 20241017
  Receipt Date: 20241018
  Transmission Date: 20250115
  Serious: No
  Sender: ROCHE
  Company Number: ES-ROCHE-3466442

PATIENT

DRUGS (1)
  1. RITUXIMAB [Suspect]
     Active Substance: RITUXIMAB
     Indication: Product used for unknown indication
     Dosage: CONTINUOUS INFUSION OVER APPROXIMATELY 6 HOURS FOR 4 WEEKS, OR 2 DOSES OF 500-750 MG/M2 EVERY 15 DAY
     Route: 042

REACTIONS (2)
  - Off label use [Unknown]
  - Infusion related reaction [Unknown]
